FAERS Safety Report 25890734 (Version 1)
Quarter: 2025Q4

REPORT INFORMATION
  Report Type: Spontaneous
  Country: US (occurrence: None)
  Receive Date: 20251006
  Receipt Date: 20251006
  Transmission Date: 20260118
  Serious: Yes (Other)
  Sender: FDA-CTU
  Company Number: None

PATIENT
  Age: 65 Year
  Sex: Female
  Weight: 86.4 kg

DRUGS (6)
  1. DICLOFENAC DIETHYLAMINE [Suspect]
     Active Substance: DICLOFENAC DIETHYLAMINE
     Indication: Plantar fasciitis
     Dosage: FREQUENCY : AT BEDTIME;?
     Route: 061
  2. VALACYCLOVIR [Concomitant]
     Active Substance: VALACYCLOVIR HYDROCHLORIDE
  3. Advil - reaction occurred (took 1 pill X 8 hours apart) [Concomitant]
  4. Brain fog [Concomitant]
  5. jitters [Concomitant]
  6. pins and needles on skin [Concomitant]

REACTIONS (6)
  - Hypoaesthesia [None]
  - Sensory loss [None]
  - Movement disorder [None]
  - Fall [None]
  - Paraesthesia [None]
  - Drug hypersensitivity [None]

NARRATIVE: CASE EVENT DATE: 20250911
